FAERS Safety Report 7085202-0 (Version None)
Quarter: 2010Q4

REPORT INFORMATION
  Report Type: 
  Country: None (occurrence: None)
  Receive Date: 20101028
  Receipt Date: 20101021
  Transmission Date: 20110411
  Serious: Yes (Hospitalization)
  Sender: FDA-Public Use
  Company Number: 733520

PATIENT
  Age: 64 Year
  Sex: Female

DRUGS (1)
  1. CARBOPLATIN [Suspect]
     Indication: OVARIAN CANCER
     Dosage: 315 MG MILLIGRAM(S), INTRAVENOUS
     Route: 042
     Dates: start: 20100929, end: 20100929

REACTIONS (3)
  - LARYNGEAL OEDEMA [None]
  - PRURITUS [None]
  - RESPIRATORY FAILURE [None]
